FAERS Safety Report 10072285 (Version 4)
Quarter: 2014Q3

REPORT INFORMATION
  Report Type: Spontaneous
  Country: US (occurrence: US)
  Receive Date: 20140411
  Receipt Date: 20140715
  Transmission Date: 20150326
  Serious: Yes (Hospitalization)
  Sender: FDA-Public Use
  Company Number: US-BAYER-2014-053497

PATIENT
  Age: 22 Year
  Sex: Female
  Weight: 69.39 kg

DRUGS (1)
  1. MIRENA [Suspect]
     Active Substance: LEVONORGESTREL
     Indication: CONTRACEPTION
     Dosage: 20 MCG/24HR, CONT
     Route: 015
     Dates: start: 20041101, end: 20070427

REACTIONS (6)
  - Embedded device [None]
  - Injury [None]
  - Pain [None]
  - Medical device pain [None]
  - Pelvic pain [None]
  - Post procedural discomfort [None]

NARRATIVE: CASE EVENT DATE: 200704
